FAERS Safety Report 4461101-5 (Version None)
Quarter: 2004Q3

REPORT INFORMATION
  Report Type: 
  Country: None (occurrence: None)
  Receive Date: 20040921
  Receipt Date: 20040921
  Transmission Date: 20050211
  Serious: Yes (Other)
  Sender: FDA-Public Use
  Company Number: None

PATIENT
  Sex: Male
  Weight: 103.4201 kg

DRUGS (9)
  1. CLOZAPINE [Suspect]
     Indication: SCHIZOAFFECTIVE DISORDER
     Dosage: 250 MG PO BID
     Route: 048
     Dates: start: 20040901
  2. ATIVAN [Concomitant]
  3. LISINOPRIL [Concomitant]
  4. TRICOR [Concomitant]
  5. NEXIUM [Concomitant]
  6. PERI-COLACE [Concomitant]
  7. NIASPAN [Concomitant]
  8. ACTOS [Concomitant]
  9. ULTRACET [Concomitant]

REACTIONS (4)
  - DIZZINESS [None]
  - NAUSEA [None]
  - PHARMACEUTICAL PRODUCT COMPLAINT [None]
  - SEDATION [None]
